FAERS Safety Report 6599651-8 (Version None)
Quarter: 2010Q1

REPORT INFORMATION
  Report Type: 
  Country: None (occurrence: None)
  Receive Date: 20100217
  Receipt Date: 20100203
  Transmission Date: 20100710
  Serious: Yes (Other)
  Sender: FDA-Public Use
  Company Number: 231426J09USA

PATIENT
  Age: 59 Year
  Sex: Female
  Weight: 91 kg

DRUGS (6)
  1. REBIF [Suspect]
     Indication: MULTIPLE SCLEROSIS
     Dosage: 44 MCG, 3 IN 1 WEEKS, SUBCUTANEOUS
     Route: 058
     Dates: start: 20070701
  2. REBIF [Suspect]
     Indication: MULTIPLE SCLEROSIS
     Dosage: 44 MCG, 3 IN 1 WEEKS, SUBCUTANEOUS
     Route: 058
     Dates: start: 20090513
  3. LEVOTHYROXINE SODIUM [Concomitant]
  4. DETROL [Concomitant]
  5. UNSPECIFIED MEDICATIONS (ANTIHYPERTENSIVES) [Concomitant]
  6. LISINOPRIL [Concomitant]

REACTIONS (6)
  - AORTIC VALVE INCOMPETENCE [None]
  - DYSPEPSIA [None]
  - GALLBLADDER DISORDER [None]
  - HYPERTENSION [None]
  - INFLUENZA [None]
  - VOMITING [None]
